FAERS Safety Report 9157934 (Version 1)
Quarter: 2013Q1

REPORT INFORMATION
  Report Type: Report from Study
  Country: US (occurrence: US)
  Receive Date: 20130312
  Receipt Date: 20130312
  Transmission Date: 20140127
  Serious: No
  Sender: FDA-Public Use
  Company Number: US-VERTEX PHARMACEUTICALS INC.-2013-003325

PATIENT
  Age: 45 Year
  Sex: Male
  Weight: 70 kg

DRUGS (8)
  1. VX-950 (TELAPREVIR) [Suspect]
     Indication: HEPATITIS C
     Dosage: 750 MG, TID
     Route: 048
  2. PEGASYS [Suspect]
     Indication: HEPATITIS C
     Route: 058
  3. RIBAVIRIN [Suspect]
     Indication: HEPATITIS C
     Dosage: 200 MG, UNK
     Route: 048
  4. KLONOPIN [Concomitant]
     Dosage: 1 MG, UNK
     Route: 048
  5. FLEXERIL [Concomitant]
     Dosage: 10 MG, UNK
     Route: 048
  6. SEROQUEL [Concomitant]
     Dosage: 100 MG, UNK
     Route: 048
  7. ZOLOFT [Concomitant]
     Dosage: 100 MG, UNK
     Route: 048
  8. QUINAPRIL [Concomitant]
     Dosage: 10 MG, UNK
     Route: 048

REACTIONS (2)
  - Rash erythematous [Unknown]
  - Urticaria [Unknown]
